FAERS Safety Report 9500244 (Version 3)
Quarter: 2013Q3

REPORT INFORMATION
  Report Type: Report from Study
  Country: KR (occurrence: KR)
  Receive Date: 20130905
  Receipt Date: 20130913
  Transmission Date: 20140515
  Serious: Yes (Hospitalization, Other)
  Sender: FDA-Public Use
  Company Number: 201310959

PATIENT
  Age: 34 Year
  Sex: Male
  Weight: 79 kg

DRUGS (3)
  1. SM-13496 [Suspect]
     Indication: SCHIZOPHRENIA
     Route: 048
     Dates: start: 20130520, end: 20130817
  2. BISACODYL [Concomitant]
     Indication: CONSTIPATION
     Route: 048
     Dates: start: 20130816, end: 20130816
  3. FESTAL [Concomitant]
     Indication: ABDOMINAL PAIN
     Route: 048
     Dates: start: 20130816, end: 20130816

REACTIONS (1)
  - Methaemoglobinaemia [Recovered/Resolved]
